FAERS Safety Report 5585766-X (Version None)
Quarter: 2008Q1

REPORT INFORMATION
  Report Type: 
  Country: None (occurrence: None)
  Receive Date: 20080109
  Receipt Date: 20071214
  Transmission Date: 20080703
  Serious: No
  Sender: FDA-Public Use
  Company Number: US-BAYER-200712635BCC

PATIENT
  Age: 79 Year
  Sex: Male
  Weight: 67 kg

DRUGS (2)
  1. ALEVE [Suspect]
     Indication: HEADACHE
     Dosage: TOTAL DAILY DOSE: 440 MG  UNIT DOSE: 220 MG
     Route: 048
     Dates: start: 20070809, end: 20070812
  2. ZOCOR [Concomitant]
     Dosage: TOTAL DAILY DOSE: 10 MG  UNIT DOSE: 10 MG
     Route: 048

REACTIONS (7)
  - AURICULAR SWELLING [None]
  - EAR PAIN [None]
  - FACIAL PAIN [None]
  - OEDEMA MOUTH [None]
  - PAIN IN JAW [None]
  - SALIVARY HYPERSECRETION [None]
  - SWELLING FACE [None]
